FAERS Safety Report 4992871-5 (Version None)
Quarter: 2006Q2

REPORT INFORMATION
  Report Type: 
  Country: None (occurrence: None)
  Receive Date: 20060504
  Receipt Date: 20050804
  Transmission Date: 20061013
  Serious: Yes (Hospitalization)
  Sender: FDA-Public Use
  Company Number: US-MERCK-0508USA01289

PATIENT
  Age: 63 Year
  Sex: Female
  Weight: 70 kg

DRUGS (4)
  1. VIOXX [Suspect]
     Indication: DYSAESTHESIA
     Route: 048
     Dates: start: 20010123, end: 20010829
  2. VIOXX [Suspect]
     Route: 048
     Dates: start: 20040713
  3. VIOXX [Suspect]
     Indication: CARPAL TUNNEL SYNDROME
     Route: 048
     Dates: start: 20010123, end: 20010829
  4. VIOXX [Suspect]
     Route: 048
     Dates: start: 20040713

REACTIONS (11)
  - ABDOMINAL DISTENSION [None]
  - ARTHROPATHY [None]
  - BARRETT'S OESOPHAGUS [None]
  - CHEST PAIN [None]
  - CONTUSION [None]
  - DIABETES MELLITUS [None]
  - GASTRITIS [None]
  - GASTROOESOPHAGEAL REFLUX DISEASE [None]
  - INTRACARDIAC THROMBUS [None]
  - OSTEOARTHRITIS [None]
  - TENOSYNOVITIS [None]
